FAERS Safety Report 22539895 (Version 1)
Quarter: 2023Q2

REPORT INFORMATION
  Report Type: Spontaneous
  Country: None (occurrence: GR)
  Receive Date: 20230609
  Receipt Date: 20230609
  Transmission Date: 20230721
  Serious: Yes (Hospitalization, Other)
  Sender: FDA-Public Use
  Company Number: GR-Therakind Limited-2142520

PATIENT
  Age: 54 Year
  Sex: Female

DRUGS (8)
  1. METHOTREXATE [Suspect]
     Active Substance: METHOTREXATE
     Indication: Product used for unknown indication
  2. ETANERCEPT [Concomitant]
     Active Substance: ETANERCEPT
  3. CYCLOSPORINE [Concomitant]
     Active Substance: CYCLOSPORINE
  4. SECUKINUMAB [Suspect]
     Active Substance: SECUKINUMAB
  5. INFLIXIMAB [Concomitant]
     Active Substance: INFLIXIMAB
  6. ADALIMUMAB [Concomitant]
     Active Substance: ADALIMUMAB
  7. COUMARIN [Concomitant]
     Active Substance: COUMARIN
  8. LEFLUNOMIDE [Concomitant]
     Active Substance: LEFLUNOMIDE

REACTIONS (20)
  - Red blood cell sedimentation rate increased [Recovering/Resolving]
  - Pyoderma gangrenosum [Unknown]
  - Bone lesion [Unknown]
  - C-reactive protein increased [Recovering/Resolving]
  - Movement disorder [Unknown]
  - Psoriasis [Unknown]
  - Osteoarthritis [Unknown]
  - Gamma-glutamyltransferase increased [Recovering/Resolving]
  - Arthralgia [Unknown]
  - Blood disorder [Unknown]
  - Pyrexia [Unknown]
  - Tuberculosis [Unknown]
  - Rash [Unknown]
  - Arthritis [Unknown]
  - Depression [Unknown]
  - Embolism arterial [Unknown]
  - Gingivitis [Unknown]
  - Blood creatinine increased [Unknown]
  - Soft tissue infection [Unknown]
  - Blood pressure increased [Unknown]
